FAERS Safety Report 21805094 (Version 13)
Quarter: 2023Q2

REPORT INFORMATION
  Report Type: Report from Study
  Country: CO (occurrence: CO)
  Receive Date: 20230102
  Receipt Date: 20230627
  Transmission Date: 20230722
  Serious: Yes (Hospitalization, Other)
  Sender: FDA-Public Use
  Company Number: CO-TAKEDA-2022TUS032777

PATIENT
  Age: 5 Year
  Sex: Male
  Weight: 15 kg

DRUGS (5)
  1. MIFAMURTIDE [Suspect]
     Active Substance: MIFAMURTIDE
     Indication: Osteosarcoma
     Dosage: 1.5 MILLIGRAM, 1/WEEK
     Route: 042
     Dates: start: 20220510
  2. MIFAMURTIDE [Suspect]
     Active Substance: MIFAMURTIDE
     Dosage: 3 MILLIGRAM, 1/WEEK
     Route: 042
     Dates: start: 20230217
  3. MIFAMURTIDE [Suspect]
     Active Substance: MIFAMURTIDE
     Dosage: 3 MILLIGRAM, 1/WEEK
     Route: 042
     Dates: end: 20230607
  4. HYQVIA [Suspect]
     Active Substance: HUMAN IMMUNOGLOBULIN G\HYALURONIDASE RECOMBINANT HUMAN
     Indication: Primary immunodeficiency syndrome
     Dosage: 20 GRAM, Q3WEEKS
     Route: 058
  5. HYQVIA [Suspect]
     Active Substance: HUMAN IMMUNOGLOBULIN G\HYALURONIDASE RECOMBINANT HUMAN
     Dosage: 20 GRAM, MONTHLY
     Route: 058

REACTIONS (40)
  - Fall [Unknown]
  - Pain in extremity [Unknown]
  - Pyrexia [Unknown]
  - Chills [Recovered/Resolved]
  - Vomiting [Unknown]
  - Femur fracture [Unknown]
  - Tibia fracture [Unknown]
  - Neutropenia [Not Recovered/Not Resolved]
  - COVID-19 [Not Recovered/Not Resolved]
  - Hepatitis [Not Recovered/Not Resolved]
  - Carditis [Not Recovered/Not Resolved]
  - Platelet count decreased [Not Recovered/Not Resolved]
  - Haematological infection [Not Recovered/Not Resolved]
  - Lower limb fracture [Unknown]
  - Viral infection [Unknown]
  - Petechiae [Unknown]
  - Discouragement [Not Recovered/Not Resolved]
  - Osteoporosis [Unknown]
  - Bone lesion [Unknown]
  - Diarrhoea infectious [Not Recovered/Not Resolved]
  - Crying [Not Recovered/Not Resolved]
  - Food intolerance [Unknown]
  - Joint range of motion decreased [Not Recovered/Not Resolved]
  - Troponin increased [Not Recovered/Not Resolved]
  - Dysphagia [Not Recovered/Not Resolved]
  - Mouth haemorrhage [Not Recovered/Not Resolved]
  - Fear of injection [Unknown]
  - Application site pain [Unknown]
  - Headache [Not Recovered/Not Resolved]
  - Decreased appetite [Not Recovered/Not Resolved]
  - Nausea [Unknown]
  - Pain [Not Recovered/Not Resolved]
  - Back pain [Not Recovered/Not Resolved]
  - Malaise [Not Recovered/Not Resolved]
  - Urinary tract infection [Not Recovered/Not Resolved]
  - Tachycardia [Not Recovered/Not Resolved]
  - Epistaxis [Not Recovered/Not Resolved]
  - Bone pain [Not Recovered/Not Resolved]
  - Asthenia [Not Recovered/Not Resolved]
  - Off label use [Unknown]

NARRATIVE: CASE EVENT DATE: 20220510
